FAERS Safety Report 9168187 (Version 2)
Quarter: 2013Q1

REPORT INFORMATION
  Report Type: Spontaneous
  Country: FR (occurrence: None)
  Receive Date: 20130225
  Receipt Date: 20130304
  Transmission Date: 20140127
  Serious: Yes (Other)
  Sender: FDA-Public Use
  Company Number: 2013034664

PATIENT
  Age: 40 Year
  Sex: Male

DRUGS (3)
  1. IMMUNE GLOBULIN [Suspect]
     Route: 042
  2. COLCHICINE (COLCHICINE) [Suspect]
  3. CORTICOSTEROIDS [Suspect]

REACTIONS (5)
  - Drug intolerance [None]
  - Weight increased [None]
  - Depression [None]
  - Decreased activity [None]
  - Drug ineffective for unapproved indication [None]
